FAERS Safety Report 9606314 (Version 1)
Quarter: 2013Q4

REPORT INFORMATION
  Report Type: Spontaneous
  Country: US (occurrence: US)
  Receive Date: 20131008
  Receipt Date: 20131008
  Transmission Date: 20140711
  Serious: No
  Sender: FDA-Public Use
  Company Number: US-AMGEN-USASP2013050114

PATIENT
  Age: 69 Year
  Sex: Female
  Weight: 54.42 kg

DRUGS (8)
  1. PROLIA [Suspect]
     Indication: OSTEOPOROSIS
     Dosage: UNK
     Dates: start: 201302
  2. DIOVAN [Concomitant]
  3. FISH OIL [Concomitant]
  4. MULTIVITAMIN                       /00097801/ [Concomitant]
  5. GLUCOSAMINE + CHONDROITIN          /01430901/ [Concomitant]
  6. VITAMIN C                          /00008001/ [Concomitant]
  7. CALCIUM [Concomitant]
  8. VITAMIN D                          /00107901/ [Concomitant]

REACTIONS (1)
  - Tooth disorder [Unknown]
